FAERS Safety Report 6492388-5 (Version None)
Quarter: 2009Q4

REPORT INFORMATION
  Report Type: 
  Country: None (occurrence: None)
  Receive Date: 20091214
  Receipt Date: 20091203
  Transmission Date: 20100525
  Serious: Yes (Hospitalization)
  Sender: FDA-Public Use
  Company Number: US-JNJFOC-20091201533

PATIENT
  Sex: Male
  Weight: 100.7 kg

DRUGS (12)
  1. REMICADE [Suspect]
     Route: 042
  2. REMICADE [Suspect]
     Route: 042
  3. REMICADE [Suspect]
     Indication: RHEUMATOID ARTHRITIS
     Route: 042
  4. SINGULAIR [Concomitant]
  5. AVANDIA [Concomitant]
  6. ADVAIR DISKUS 100/50 [Concomitant]
  7. METHOTREXATE [Concomitant]
  8. PREDNISONE [Concomitant]
  9. FOSAMAX [Concomitant]
  10. OS.CAL [Concomitant]
  11. ALBUTEROL [Concomitant]
  12. FOLIC ACID [Concomitant]

REACTIONS (1)
  - HISTOPLASMOSIS [None]
